FAERS Safety Report 8249451-8 (Version None)
Quarter: 2012Q1

REPORT INFORMATION
  Report Type: 
  Country: None (occurrence: None)
  Receive Date: 20120316
  Receipt Date: 20100421
  Transmission Date: 20120608
  Serious: Yes (Other)
  Sender: FDA-Public Use
  Company Number: PHHY2010US26076

PATIENT
  Sex: Male

DRUGS (4)
  1. DIOVAN [Concomitant]
  2. TEKTURNA [Suspect]
  3. BYSTOLIC [Concomitant]
  4. DIURETICS (NO INGREDIENTS/SUBSTANCES) [Concomitant]

REACTIONS (1)
  - NASOPHARYNGITIS [None]
